FAERS Safety Report 6737511-X (Version None)
Quarter: 2010Q2

REPORT INFORMATION
  Report Type: 
  Country: None (occurrence: None)
  Receive Date: 20100521
  Receipt Date: 20100521
  Transmission Date: 20101027
  Serious: Yes (Hospitalization)
  Sender: FDA-Public Use
  Company Number: None

PATIENT
  Age: 29 Year
  Sex: Female
  Weight: 56.246 kg

DRUGS (1)
  1. ATRIPLA [Suspect]
     Indication: HIV TEST POSITIVE
     Dosage: ONE TABLET DAILY PO
     Route: 048
     Dates: start: 20100401, end: 20100421

REACTIONS (5)
  - AFFECT LABILITY [None]
  - AGGRESSION [None]
  - DELUSION [None]
  - PRESSURE OF SPEECH [None]
  - PSYCHIATRIC SYMPTOM [None]
